FAERS Safety Report 6268865-9 (Version None)
Quarter: 2009Q3

REPORT INFORMATION
  Report Type: 
  Country: None (occurrence: None)
  Receive Date: 20090709
  Receipt Date: 20090709
  Transmission Date: 20100115
  Serious: Yes (Life-Threatening, Hospitalization)
  Sender: FDA-Public Use
  Company Number: None

PATIENT
  Age: 63 Year
  Sex: Male
  Weight: 83.9154 kg

DRUGS (1)
  1. BYETTA [Suspect]
     Indication: TYPE 2 DIABETES MELLITUS
     Dosage: 10MG TWICE DAILY UNK ABOUT 5 YEARS
     Dates: start: 20030115, end: 20090330

REACTIONS (2)
  - PANCREATIC CARCINOMA [None]
  - PANCREATITIS ACUTE [None]
